FAERS Safety Report 22049141 (Version 1)
Quarter: 2023Q1

REPORT INFORMATION
  Report Type: Spontaneous
  Country: CN (occurrence: CN)
  Receive Date: 20230301
  Receipt Date: 20230301
  Transmission Date: 20230418
  Serious: Yes (Other)
  Sender: FDA-Public Use
  Company Number: CN-SA-SAC20230210000102

PATIENT
  Age: 84 Year
  Sex: Male

DRUGS (1)
  1. PLAVIX [Suspect]
     Active Substance: CLOPIDOGREL BISULFATE
     Indication: Upper gastrointestinal haemorrhage
     Dosage: 75 MG QD
     Route: 045
     Dates: start: 20221105, end: 20221109

REACTIONS (3)
  - Haematochezia [Unknown]
  - Faeces discoloured [Unknown]
  - Haemoglobin decreased [Unknown]

NARRATIVE: CASE EVENT DATE: 20221108
